FAERS Safety Report 15021419 (Version 1)
Quarter: 2018Q2

REPORT INFORMATION
  Report Type: Spontaneous
  Country: HU (occurrence: HU)
  Receive Date: 20180618
  Receipt Date: 20180618
  Transmission Date: 20180711
  Serious: Yes (Hospitalization)
  Sender: FDA-Public Use
  Company Number: HU-ROCHE-2141572

PATIENT
  Age: 59 Year
  Sex: Female

DRUGS (4)
  1. PANTOPRAZOLE [Concomitant]
     Active Substance: PANTOPRAZOLE
     Indication: PREMEDICATION
     Dosage: 40MG IN THE EVENING BEFORE THE CHEMOTHERAPY?40MG IN THE MORNING BEFORE THE CHEMOTHERAPY
     Route: 048
  2. LENDIN [Concomitant]
     Indication: PREMEDICATION
     Dosage: 20MG IN THE EVENING BEFORE THE CHEMOTHERAPY?20MG IN THE MORNING BEFORE THE CHEMOTHERAPY
     Route: 048
  3. HERCEPTIN [Concomitant]
     Active Substance: TRASTUZUMAB
     Indication: BREAST CANCER
     Route: 042
     Dates: start: 20171103
  4. PERJETA [Suspect]
     Active Substance: PERTUZUMAB
     Indication: BREAST CANCER
     Route: 041
     Dates: start: 20171215

REACTIONS (4)
  - Hepatitis C [Unknown]
  - Dermatitis allergic [Recovered/Resolved]
  - Joint swelling [Recovered/Resolved]
  - Skin haemorrhage [Recovered/Resolved]

NARRATIVE: CASE EVENT DATE: 20180108
